FAERS Safety Report 18150601 (Version 1)
Quarter: 2020Q3

REPORT INFORMATION
  Report Type: Spontaneous
  Country: US (occurrence: US)
  Receive Date: 20200814
  Receipt Date: 20200814
  Transmission Date: 20201103
  Serious: Yes (Disabling)
  Sender: FDA-Public Use
  Company Number: None

PATIENT
  Age: 80 Year
  Sex: Male
  Weight: 67.05 kg

DRUGS (5)
  1. MUCINEX [Suspect]
     Active Substance: GUAIFENESIN
  2. MEDLINE SPECTRUM HAND SANITIZER GEL [ETHYL ALCOHOL] [Suspect]
     Active Substance: ALCOHOL
     Indication: COVID-19 PROPHYLAXIS
     Dosage: ?          QUANTITY:1 APPLICATION;?
     Route: 061
     Dates: start: 20200707, end: 20200709
  3. KRILL OIL [Concomitant]
     Active Substance: DIETARY SUPPLEMENT\KRILL OIL
  4. IRBESARTAN/AMLODIPINE [Concomitant]
  5. ONE?A?DAY [Concomitant]
     Active Substance: VITAMINS

REACTIONS (2)
  - Parosmia [None]
  - Presyncope [None]

NARRATIVE: CASE EVENT DATE: 20200710
